FAERS Safety Report 9206707 (Version 1)
Quarter: 2013Q2

REPORT INFORMATION
  Report Type: Spontaneous
  Country: TR (occurrence: None)
  Receive Date: 20130401
  Receipt Date: 20130401
  Transmission Date: 20140414
  Serious: Yes (Other)
  Sender: FDA-Public Use
  Company Number: 1645383

PATIENT
  Age: 34 Year
  Sex: Male

DRUGS (1)
  1. (CARBOPLATIN) [Suspect]
     Indication: BREAST CANCER
     Route: 041
     Dates: start: 20130225, end: 20130225

REACTIONS (6)
  - Angioedema [None]
  - Back pain [None]
  - Pyrexia [None]
  - Chills [None]
  - Chest discomfort [None]
  - Musculoskeletal discomfort [None]
